FAERS Safety Report 4480537-X (Version None)
Quarter: 2004Q4

REPORT INFORMATION
  Report Type: 
  Country: None (occurrence: None)
  Receive Date: 20041019
  Receipt Date: 20041006
  Transmission Date: 20050328
  Serious: Yes (Disabling, Other)
  Sender: FDA-Public Use
  Company Number: 2004075544

PATIENT
  Age: 45 Year
  Sex: Male

DRUGS (6)
  1. GABAPENTIN [Suspect]
     Indication: EPILEPSY
     Dosage: 1800 MG (600 MG, 3 IN 1 D), ORAL
     Route: 048
     Dates: start: 20040525, end: 20040910
  2. LAMOTRIGINE [Concomitant]
  3. ASPIRIN [Concomitant]
  4. ATENOLOL [Concomitant]
  5. RAMIPRIL [Concomitant]
  6. SIMVASTATIN [Concomitant]

REACTIONS (5)
  - CRANIAL NERVE DISORDER [None]
  - DIPLOPIA [None]
  - EYE PAIN [None]
  - GAZE PALSY [None]
  - VISUAL DISTURBANCE [None]
